FAERS Safety Report 17739764 (Version 1)
Quarter: 2020Q2

REPORT INFORMATION
  Report Type: Spontaneous
  Country: US (occurrence: US)
  Receive Date: 20200504
  Receipt Date: 20200504
  Transmission Date: 20200714
  Serious: Yes (Life-Threatening, Hospitalization, Other)
  Sender: FDA-Public Use
  Company Number: US-HIKMA PHARMACEUTICALS USA INC.-US-H14001-20-51263

PATIENT
  Age: 76 Year
  Sex: Female

DRUGS (3)
  1. LOSARTAN. [Suspect]
     Active Substance: LOSARTAN
     Indication: PRODUCT USED FOR UNKNOWN INDICATION
     Dosage: OVER 100 PILLS AT ABOUT 06:00, A MIX OF EXTENDED RELEASE METOPROLOL 50MG TABLETS, DULOXETINE 60MG TA
     Route: 065
  2. METOPROLOL. [Suspect]
     Active Substance: METOPROLOL
     Indication: PRODUCT USED FOR UNKNOWN INDICATION
     Dosage: OVER 100 PILLS AT ABOUT 06:00, A MIX OF EXTENDED RELEASE METOPROLOL 50MG TABLETS, DULOXETINE 60MG TA
     Route: 065
  3. DULOXETINE. [Suspect]
     Active Substance: DULOXETINE
     Indication: PRODUCT USED FOR UNKNOWN INDICATION
     Dosage: OVER 100 PILLS AT ABOUT 06:00, A MIX OF EXTENDED RELEASE METOPROLOL 50MG TABLETS, DULOXETINE 60MG TA
     Route: 065

REACTIONS (5)
  - Intentional overdose [Unknown]
  - Bradycardia [Unknown]
  - Hypotension [Unknown]
  - Hypothermia [Unknown]
  - Depressed level of consciousness [Unknown]
